FAERS Safety Report 8152221 (Version 3)
Quarter: 2013Q2

REPORT INFORMATION
  Report Type: Spontaneous
  Country: US (occurrence: US)
  Receive Date: 20110922
  Receipt Date: 20130418
  Transmission Date: 20140414
  Serious: No
  Sender: FDA-Public Use
  Company Number: US-ASTRAZENECA-2011SE44727

PATIENT
  Age: 55 Year
  Sex: Male
  Weight: 92.5 kg

DRUGS (11)
  1. SEROQUEL [Suspect]
     Indication: BIPOLAR DISORDER
     Route: 048
  2. SEROQUEL [Suspect]
     Indication: SLEEP DISORDER
     Route: 048
  3. SEROQUEL [Suspect]
     Indication: BIPOLAR DISORDER
     Route: 048
  4. SEROQUEL [Suspect]
     Indication: SLEEP DISORDER
     Route: 048
  5. SEROQUEL [Suspect]
     Indication: BIPOLAR DISORDER
     Route: 048
     Dates: start: 2005
  6. SEROQUEL [Suspect]
     Indication: SLEEP DISORDER
     Route: 048
     Dates: start: 2005
  7. ATENOLOL [Suspect]
     Indication: BLOOD PRESSURE
     Route: 048
  8. BUSPIRON [Concomitant]
  9. BUSPAR [Concomitant]
     Indication: ANXIETY
  10. LITHIUM [Concomitant]
     Indication: BIPOLAR DISORDER
  11. VICODIN [Concomitant]
     Indication: PAIN
     Dosage: AS NEEDED

REACTIONS (9)
  - Insomnia [Unknown]
  - Pain [Not Recovered/Not Resolved]
  - Osteoarthritis [Unknown]
  - Bipolar disorder [Unknown]
  - Feeling drunk [Unknown]
  - Anxiety [Not Recovered/Not Resolved]
  - Hypertension [Not Recovered/Not Resolved]
  - Drug dose omission [Unknown]
  - Intentional drug misuse [Unknown]
